FAERS Safety Report 5650744-9 (Version None)
Quarter: 2008Q1

REPORT INFORMATION
  Report Type: 
  Country: None (occurrence: None)
  Receive Date: 20080305
  Receipt Date: 20080229
  Transmission Date: 20080703
  Serious: Yes (Hospitalization)
  Sender: FDA-Public Use
  Company Number: PHEH2008US01221

PATIENT
  Age: 83 Year
  Sex: Female
  Weight: 74.376 kg

DRUGS (19)
  1. LOTREL [Concomitant]
     Dosage: 10/20 MG, QD
     Route: 048
  2. TRAMADOL HCL [Concomitant]
     Dosage: 50 MG, BID
  3. RECLAST [Suspect]
     Indication: OSTEOPOROSIS
     Dosage: 5 MG, ONCE YEARLY
     Dates: start: 20080111
  4. OSCAL 500-D [Concomitant]
  5. ZEBETA [Concomitant]
     Dosage: 20 MG, QD
     Route: 048
  6. LOTENSIN [Concomitant]
  7. NORVASC [Concomitant]
  8. NORCO [Concomitant]
     Dosage: 5/325 MG, EVERY 4 HOURS
     Route: 048
  9. VALIUM [Concomitant]
     Dosage: 5 MG, PRN
     Route: 048
  10. TYLENOL (CAPLET) [Concomitant]
  11. COLACE [Concomitant]
  12. SYNTHROID [Concomitant]
     Dosage: 0.025 UNK, QD
     Route: 048
  13. NEURONTIN [Concomitant]
  14. LASIX [Concomitant]
     Dosage: 40 MG, QD
     Route: 048
  15. LACTULOSE [Concomitant]
  16. TIMOPTIC [Concomitant]
  17. K-DUR 10 [Concomitant]
     Dosage: 20 MEQ, QID
     Route: 048
  18. AMBIEN [Concomitant]
  19. MILK OF MAGNESIA [Concomitant]

REACTIONS (6)
  - ASTHENIA [None]
  - BLOOD CREATININE INCREASED [None]
  - DYSPNOEA [None]
  - FALL [None]
  - LEUKOCYTOSIS [None]
  - PYREXIA [None]
